FAERS Safety Report 7098875-3 (Version None)
Quarter: 2010Q4

REPORT INFORMATION
  Report Type: 
  Country: None (occurrence: None)
  Receive Date: 20101112
  Receipt Date: 20101109
  Transmission Date: 20110411
  Serious: Yes (Hospitalization)
  Sender: FDA-Public Use
  Company Number: TR-PFIZER INC-2010144566

PATIENT
  Age: 55 Year
  Sex: Female

DRUGS (5)
  1. SULPERAZON [Suspect]
     Indication: PNEUMONIA
     Dosage: 2 G, 2X/DAY
  2. FLUCONAZOLE [Concomitant]
     Indication: CANDIDIASIS
     Dosage: 100 MG, 2X/DAY
     Route: 042
  3. AMPHOTERICIN B [Concomitant]
     Indication: CANDIDIASIS
     Dosage: 300 MG, 1X/DAY
  4. VANCOMYCIN [Concomitant]
     Indication: PERITONITIS
     Dosage: 2 G, WEEKLY
  5. AMIKACIN [Concomitant]
     Indication: PERITONITIS
     Dosage: 500 MG, EVERY 5 DAYS

REACTIONS (1)
  - COAGULOPATHY [None]
